FAERS Safety Report 13041870 (Version 1)
Quarter: 2016Q4

REPORT INFORMATION
  Report Type: Spontaneous
  Country: US (occurrence: US)
  Receive Date: 20161219
  Receipt Date: 20161219
  Transmission Date: 20170207
  Serious: No
  Sender: FDA-Public Use
  Company Number: US-ROCHE-1139399

PATIENT
  Sex: Female
  Weight: 219 kg

DRUGS (1)
  1. ZELBORAF [Suspect]
     Active Substance: VEMURAFENIB
     Indication: MALIGNANT MELANOMA
     Route: 048

REACTIONS (4)
  - Rash generalised [Unknown]
  - Urticaria [Unknown]
  - Pruritus [Unknown]
  - Vomiting [Unknown]
